FAERS Safety Report 7815949-7 (Version None)
Quarter: 2011Q4

REPORT INFORMATION
  Report Type: 
  Country: None (occurrence: None)
  Receive Date: 20111014
  Receipt Date: 20110930
  Transmission Date: 20120403
  Serious: Yes (Death, Other)
  Sender: FDA-Public Use
  Company Number: GB-ROCHE-GNE322351

PATIENT
  Sex: Female
  Weight: 48.1 kg

DRUGS (5)
  1. CALCICHEW D3 FORTE [Concomitant]
     Dates: start: 20050401
  2. FUROSEMIDE [Concomitant]
     Dates: start: 20091201
  3. LANSOPRAZOLE [Concomitant]
     Dates: start: 20090301
  4. LUCENTIS [Suspect]
     Indication: AGE-RELATED MACULAR DEGENERATION
     Route: 050
     Dates: start: 20090601, end: 20110201
  5. LEVOTHYROXINE SODIUM [Concomitant]

REACTIONS (2)
  - CARDIAC FAILURE CONGESTIVE [None]
  - SUDDEN DEATH [None]
